FAERS Safety Report 18159049 (Version 1)
Quarter: 2020Q3

REPORT INFORMATION
  Report Type: Spontaneous
  Country: US (occurrence: US)
  Receive Date: 20200817
  Receipt Date: 20200817
  Transmission Date: 20201103
  Serious: No
  Sender: FDA-Public Use
  Company Number: US-TEVA-2020-US-1815287

PATIENT
  Sex: Female

DRUGS (1)
  1. CLONIDINE. [Suspect]
     Active Substance: CLONIDINE
     Dosage: .2 MILLIGRAM DAILY;
     Route: 062
     Dates: start: 202002

REACTIONS (4)
  - Application site pruritus [Unknown]
  - Hypersensitivity [Unknown]
  - Application site erythema [Unknown]
  - Product adhesion issue [Unknown]
